FAERS Safety Report 13045831 (Version 1)
Quarter: 2016Q4

REPORT INFORMATION
  Report Type: Report from Study
  Country: KR (occurrence: KR)
  Receive Date: 20161220
  Receipt Date: 20161220
  Transmission Date: 20170207
  Serious: Yes (Hospitalization)
  Sender: FDA-Public Use
  Company Number: KR-JNJFOC-20161207933

PATIENT
  Age: 43 Year
  Sex: Female

DRUGS (3)
  1. TALION [Concomitant]
     Active Substance: BEPOTASTINE
     Indication: PSORIASIS
     Route: 048
     Dates: start: 20160607
  2. USTEKINUMAB [Suspect]
     Active Substance: USTEKINUMAB
     Indication: PSORIASIS
     Route: 058
  3. XYZAL [Concomitant]
     Active Substance: LEVOCETIRIZINE DIHYDROCHLORIDE
     Indication: PSORIASIS
     Route: 048
     Dates: start: 20160607

REACTIONS (1)
  - Post herpetic neuralgia [Recovered/Resolved]

NARRATIVE: CASE EVENT DATE: 20160815
